FAERS Safety Report 24140762 (Version 1)
Quarter: 2024Q3

REPORT INFORMATION
  Report Type: Spontaneous
  Country: IR (occurrence: IR)
  Receive Date: 20240726
  Receipt Date: 20240726
  Transmission Date: 20241017
  Serious: Yes (Hospitalization)
  Sender: NOVARTIS
  Company Number: IR-SANDOZ-SDZ2024IR066628

PATIENT
  Age: 54 Year
  Sex: Male

DRUGS (4)
  1. MYFORTIC [Suspect]
     Active Substance: MYCOPHENOLATE SODIUM
     Indication: Liver transplant
     Dosage: 1440 MG, QD (360 MG, QID)
     Route: 048
  2. MYFORTIC [Suspect]
     Active Substance: MYCOPHENOLATE SODIUM
     Dosage: UNK
     Route: 065
  3. PREDNISOLONE [Concomitant]
     Active Substance: PREDNISOLONE
     Indication: Liver transplant
     Dosage: 5 MG, QD
     Route: 048
     Dates: start: 2023
  4. PROGRAF [Concomitant]
     Active Substance: TACROLIMUS
     Indication: Liver transplant
     Dosage: 1 MG (5 PER DAY)
     Route: 048
     Dates: start: 2023

REACTIONS (5)
  - Hepatic enzyme increased [Not Recovered/Not Resolved]
  - Blood creatinine increased [Not Recovered/Not Resolved]
  - Chills [Unknown]
  - Pyrexia [Unknown]
  - Product odour abnormal [Unknown]

NARRATIVE: CASE EVENT DATE: 20240715
